FAERS Safety Report 7557763-6 (Version None)
Quarter: 2011Q2

REPORT INFORMATION
  Report Type: 
  Country: None (occurrence: None)
  Receive Date: 20110620
  Receipt Date: 20110610
  Transmission Date: 20111010
  Serious: Yes (Hospitalization, Other)
  Sender: FDA-Public Use
  Company Number: US-MERCK-1106USA01410

PATIENT
  Sex: Female

DRUGS (2)
  1. ZOCOR [Suspect]
     Route: 048
  2. VERAPAMIL [Concomitant]
     Route: 065

REACTIONS (3)
  - ARTHRALGIA [None]
  - LUNG NEOPLASM MALIGNANT [None]
  - BLOOD CREATININE INCREASED [None]
